FAERS Safety Report 23908061 (Version 1)
Quarter: 2024Q2

REPORT INFORMATION
  Report Type: Spontaneous
  Country: CN (occurrence: CN)
  Receive Date: 20240528
  Receipt Date: 20240528
  Transmission Date: 20240716
  Serious: Yes (Other)
  Sender: FDA-Public Use
  Company Number: CN-SHANGHAI JUNSHI BIOSCIENCES CO., LTD.-CN2024010101

PATIENT

DRUGS (2)
  1. TORIPALIMAB [Suspect]
     Active Substance: TORIPALIMAB
     Indication: Bile duct adenocarcinoma
     Dosage: 240 MG, Q3W
     Route: 065
     Dates: start: 20211022
  2. CATEQUENTINIB [Concomitant]
     Active Substance: CATEQUENTINIB
     Indication: Bile duct adenocarcinoma
     Dosage: 10 MG (D1-D14, EVERY 3 WEEKS AS A CYCLE)
     Route: 048
     Dates: start: 20211022

REACTIONS (4)
  - Cerebral infarction [Unknown]
  - Myocardial infarction [Unknown]
  - Hypertension [Recovering/Resolving]
  - Off label use [Unknown]

NARRATIVE: CASE EVENT DATE: 20211004
